FAERS Safety Report 12587192 (Version 1)
Quarter: 2016Q3

REPORT INFORMATION
  Report Type: Spontaneous
  Country: None (occurrence: ES)
  Receive Date: 20160725
  Receipt Date: 20160725
  Transmission Date: 20161109
  Serious: Yes (Hospitalization, Other)
  Sender: FDA-Public Use
  Company Number: ES-MEDAC PHARMA, INC.-1055471

PATIENT
  Age: 76 Year
  Sex: Female

DRUGS (1)
  1. METOJECT [Suspect]
     Active Substance: METHOTREXATE SODIUM
     Indication: RHEUMATOID ARTHRITIS
     Dates: start: 20160425, end: 20160622

REACTIONS (4)
  - Cardiac failure congestive [Unknown]
  - Varicella post vaccine [Unknown]
  - Chronic kidney disease [Unknown]
  - Bicytopenia [Unknown]

NARRATIVE: CASE EVENT DATE: 2016
